FAERS Safety Report 5122505-0 (Version None)
Quarter: 2006Q4

REPORT INFORMATION
  Report Type: 
  Country: None (occurrence: None)
  Receive Date: 20061004
  Receipt Date: 20060920
  Transmission Date: 20070319
  Serious: Yes (Hospitalization)
  Sender: FDA-Public Use
  Company Number: 2006P1000439

PATIENT
  Age: 73 Year
  Sex: Male
  Weight: 80 kg

DRUGS (11)
  1. RETEPLASE [Suspect]
     Indication: ACUTE MYOCARDIAL INFARCTION
     Dosage: IV
     Route: 042
     Dates: start: 20060501, end: 20060501
  2. REOPRO [Suspect]
     Indication: ACUTE MYOCARDIAL INFARCTION
     Dosage: IV
     Route: 042
     Dates: start: 20060501
  3. TICLOPIDINE [Concomitant]
  4. ASPIRIN [Concomitant]
  5. TRIMETAZIDINE [Concomitant]
  6. SIMVASTATIN [Concomitant]
  7. PERINDOPRIL ERBUMINE [Concomitant]
  8. METOPROLOL TARTRATE [Concomitant]
  9. SPIRONOLACTONE [Concomitant]
  10. PRUNUS AFRICANA [Concomitant]
  11. DOXAZOSIN [Concomitant]

REACTIONS (4)
  - CORONARY ARTERY STENOSIS [None]
  - HAEMATOCRIT DECREASED [None]
  - HAEMOGLOBIN DECREASED [None]
  - RED BLOOD CELL COUNT DECREASED [None]
